FAERS Safety Report 12332982 (Version 1)
Quarter: 2016Q2

REPORT INFORMATION
  Report Type: Spontaneous
  Country: US (occurrence: US)
  Receive Date: 20160504
  Receipt Date: 20160504
  Transmission Date: 20160815
  Serious: No
  Sender: FDA-Public Use
  Company Number: US-009507513-1605USA000335

PATIENT

DRUGS (2)
  1. KEYTRUDA [Suspect]
     Active Substance: PEMBROLIZUMAB
     Dosage: UNK
  2. VECTIBIX [Suspect]
     Active Substance: PANITUMUMAB
     Dosage: UNK

REACTIONS (3)
  - Intercepted medication error [Unknown]
  - Product name confusion [Unknown]
  - No adverse event [Unknown]

NARRATIVE: CASE EVENT DATE: 201603
